FAERS Safety Report 22074525 (Version 1)
Quarter: 2023Q1

REPORT INFORMATION
  Report Type: Spontaneous
  Country: US (occurrence: US)
  Receive Date: 20230308
  Receipt Date: 20230308
  Transmission Date: 20230417
  Serious: Yes (Hospitalization, Other)
  Sender: FDA-Public Use
  Company Number: US-MYLANLABS-2023M1023249

PATIENT
  Sex: Female
  Weight: 91.172 kg

DRUGS (10)
  1. SILDENAFIL [Suspect]
     Active Substance: SILDENAFIL
     Indication: Pulmonary arterial hypertension
     Dosage: UNK
     Route: 065
  2. TYVASO [Suspect]
     Active Substance: TREPROSTINIL
     Indication: Pulmonary arterial hypertension
     Dosage: 54 MICROGRAM, QID
     Dates: start: 20220208
  3. HYDRODIURIL [Suspect]
     Active Substance: HYDROCHLOROTHIAZIDE
     Indication: Product used for unknown indication
     Dosage: 25 MILLIGRAM, QD
     Route: 048
     Dates: end: 20230215
  4. REVATIO [Concomitant]
     Active Substance: SILDENAFIL CITRATE
     Dosage: UNK
     Route: 065
  5. LETAIRIS [Concomitant]
     Active Substance: AMBRISENTAN
     Dosage: UNK
     Route: 065
  6. VITAMIN D3 [Concomitant]
     Active Substance: CHOLECALCIFEROL
     Dosage: UNK
     Route: 065
  7. DIPHENHYDRAMINE [Concomitant]
     Active Substance: DIPHENHYDRAMINE
     Dosage: UNK
     Route: 065
  8. TESSALON [Concomitant]
     Active Substance: BENZONATATE
     Dosage: UNK
     Route: 065
  9. FLONASE [Concomitant]
     Active Substance: FLUTICASONE PROPIONATE
     Dosage: UNK
     Route: 065
  10. VENTOLIN HFA [Concomitant]
     Active Substance: ALBUTEROL SULFATE
     Dosage: UNK
     Route: 065

REACTIONS (18)
  - Blood pressure increased [Recovered/Resolved]
  - Blood potassium decreased [Recovered/Resolved]
  - Blood pressure decreased [Unknown]
  - Stress [Recovered/Resolved]
  - Pruritus [Unknown]
  - Angina pectoris [Unknown]
  - Carotid artery stenosis [Unknown]
  - Headache [Unknown]
  - Chest pain [Not Recovered/Not Resolved]
  - Essential hypertension [Unknown]
  - Hyperhidrosis [Unknown]
  - Type V hyperlipidaemia [Unknown]
  - Aortic valve stenosis [Unknown]
  - Chest discomfort [Unknown]
  - Dyspepsia [Unknown]
  - Emotional disorder [Unknown]
  - Drug intolerance [Unknown]
  - Dyspnoea exertional [Unknown]
